FAERS Safety Report 20248935 (Version 1)
Quarter: 2021Q4

REPORT INFORMATION
  Report Type: Spontaneous
  Country: JP (occurrence: JP)
  Receive Date: 20211229
  Receipt Date: 20211229
  Transmission Date: 20220303
  Serious: Yes (Death, Hospitalization, Other)
  Sender: FDA-Public Use
  Company Number: JP-DSJP-DSJ-2021-102943

PATIENT
  Age: 88 Year
  Sex: Male
  Weight: 59 kg

DRUGS (12)
  1. PRASUGREL HYDROCHLORIDE [Suspect]
     Active Substance: PRASUGREL HYDROCHLORIDE
     Indication: Angina unstable
     Dosage: 3.75 MG, QD
     Route: 048
     Dates: start: 20191229
  2. ASPIRIN [Suspect]
     Active Substance: ASPIRIN
     Indication: Coronary arterial stent insertion
     Dosage: 100 MG, QD
     Route: 048
     Dates: start: 20191229, end: 20210119
  3. ASPIRIN [Suspect]
     Active Substance: ASPIRIN
     Indication: Cerebral infarction
  4. ASPIRIN [Suspect]
     Active Substance: ASPIRIN
     Indication: Hemiplegia
  5. VONOPRAZAN FUMARATE [Concomitant]
     Active Substance: VONOPRAZAN FUMARATE
     Indication: Prophylaxis against gastrointestinal ulcer
     Dosage: 10 MG, QD
     Route: 048
     Dates: start: 20191229
  6. ROSUVASTATIN                       /01588602/ [Concomitant]
     Indication: Hypercholesterolaemia
     Dosage: 2.5 MG, QD
     Route: 048
     Dates: start: 20191229
  7. GOREISAN                           /08015701/ [Concomitant]
     Indication: Subdural haematoma
     Dosage: 2.5 G, TID
     Route: 048
     Dates: start: 20201217
  8. TRANEXAMIC ACID [Concomitant]
     Active Substance: TRANEXAMIC ACID
     Indication: Haemostasis
     Dosage: 250 MG, TID
     Route: 048
     Dates: start: 20210107
  9. AMIODARONE HYDROCHLORIDE [Concomitant]
     Active Substance: AMIODARONE HYDROCHLORIDE
     Indication: Ventricular tachycardia
     Dosage: 100 MG, BID
     Route: 048
     Dates: start: 20191230
  10. ISOSORBIDE DINITRATE [Concomitant]
     Active Substance: ISOSORBIDE DINITRATE
     Indication: Myocardial ischaemia
     Dosage: 40 MG, QD
     Dates: start: 20200525
  11. TAMSULOSIN HYDROCHLORIDE [Concomitant]
     Active Substance: TAMSULOSIN HYDROCHLORIDE
     Indication: Benign prostatic hyperplasia
     Dosage: 0.2 MG, QD
     Route: 048
  12. TAMSULOSIN HYDROCHLORIDE [Concomitant]
     Active Substance: TAMSULOSIN HYDROCHLORIDE
     Indication: Dysuria

REACTIONS (5)
  - Subdural haematoma [Fatal]
  - Ventricular tachycardia [Unknown]
  - Myocardial ischaemia [Unknown]
  - Wound haemorrhage [Recovering/Resolving]
  - Contusion [Unknown]

NARRATIVE: CASE EVENT DATE: 20191230
